FAERS Safety Report 7443424-0 (Version None)
Quarter: 2011Q2

REPORT INFORMATION
  Report Type: 
  Country: None (occurrence: None)
  Receive Date: 20110420
  Receipt Date: 20110407
  Transmission Date: 20111010
  Serious: Yes (Other)
  Sender: FDA-Public Use
  Company Number: 8037840

PATIENT
  Sex: Male
  Weight: 11.6121 kg

DRUGS (4)
  1. PRENATAL VITAMINS /01549301/ [Concomitant]
  2. VITAMIN B6 [Concomitant]
  3. CARBATROL [Concomitant]
  4. KEPPRA [Suspect]
     Indication: CONVULSION
     Dosage: (1000 MG, DOSE FREQ.: DAILY TRANSPLACENTAL)
     Route: 064
     Dates: start: 20070701, end: 20080304

REACTIONS (4)
  - PREMATURE BABY [None]
  - MATERNAL DRUGS AFFECTING FOETUS [None]
  - SMALL FOR DATES BABY [None]
  - SPEECH DISORDER [None]
